FAERS Safety Report 9006491 (Version 1)
Quarter: 2012Q4

REPORT INFORMATION
  Report Type: Spontaneous
  Country: NZ (occurrence: None)
  Receive Date: 20121227
  Receipt Date: 20121227
  Transmission Date: 20130627
  Serious: Yes (Hospitalization, Other)
  Sender: FDA-Public Use
  Company Number: 2012-22588

PATIENT
  Age: 3 Year
  Sex: Female

DRUGS (2)
  1. PARACETAMOL (UNKNOWN) (PARACETAMOL) UNK, UNKUNK [Suspect]
     Indication: FLU-LIKE SYMPTOMS
  2. GASTROLYTE  /00386201/ (GLUCOSE, POTASSIUM CHLORIDE, SODIUM, BICARBONATE, SODIUM CHLORIDE) [Concomitant]

REACTIONS (17)
  - Liver transplant [None]
  - International normalised ratio increased [None]
  - Consciousness fluctuating [None]
  - Respiration abnormal [None]
  - Tremor [None]
  - Renal failure acute [None]
  - Accidental overdose [None]
  - Irritability [None]
  - Retching [None]
  - Diarrhoea [None]
  - Jaundice [None]
  - Haematemesis [None]
  - Screaming [None]
  - Unresponsive to stimuli [None]
  - Aspartate aminotransferase increased [None]
  - Alanine aminotransferase increased [None]
  - Dialysis [None]
